FAERS Safety Report 9031742 (Version 2)
Quarter: 2013Q1

REPORT INFORMATION
  Report Type: Spontaneous
  Country: JP (occurrence: JP)
  Receive Date: 20130124
  Receipt Date: 20130219
  Transmission Date: 20140127
  Serious: Yes (Hospitalization, Other)
  Sender: FDA-Public Use
  Company Number: JP-PFIZER INC-2013018707

PATIENT
  Age: 76 Year
  Sex: Male

DRUGS (3)
  1. SOLU-MEDROL [Suspect]
     Indication: OPTIC NEURITIS
     Dosage: 1000 MG, UNK
     Dates: start: 2010, end: 2010
  2. SOLU-MEDROL [Suspect]
     Indication: TOLOSA-HUNT SYNDROME
  3. PREDONINE [Concomitant]
     Dosage: 30 MG, UNK
     Route: 048
     Dates: start: 201008

REACTIONS (1)
  - Sinusitis aspergillus [Recovering/Resolving]
